FAERS Safety Report 10798283 (Version 1)
Quarter: 2015Q1

REPORT INFORMATION
  Report Type: Spontaneous
  Country: US (occurrence: US)
  Receive Date: 20150216
  Receipt Date: 20150216
  Transmission Date: 20150721
  Serious: No
  Sender: FDA-Public Use
  Company Number: US-PFIZER INC-2015058768

PATIENT
  Sex: Female

DRUGS (1)
  1. LYRICA [Suspect]
     Active Substance: PREGABALIN
     Indication: NEUROPATHY PERIPHERAL
     Dosage: 75 MG, 2X/DAY

REACTIONS (8)
  - Feeling abnormal [Unknown]
  - Impaired driving ability [Unknown]
  - Fear [Unknown]
  - Gait disturbance [Unknown]
  - Balance disorder [Unknown]
  - Somnolence [Unknown]
  - Dizziness [Unknown]
  - Speech disorder [Unknown]
